FAERS Safety Report 6286392-X (Version None)
Quarter: 2009Q3

REPORT INFORMATION
  Report Type: 
  Country: None (occurrence: None)
  Receive Date: 20090727
  Receipt Date: 20090727
  Transmission Date: 20100115
  Serious: Yes (Other)
  Sender: FDA-Public Use
  Company Number: None

PATIENT
  Age: 15 Year
  Sex: Female
  Weight: 47.6277 kg

DRUGS (1)
  1. BENZACLIN [Suspect]
     Indication: ACNE
     Dosage: 50GM AT BEDTIME
     Dates: start: 20090428

REACTIONS (3)
  - BURNING SENSATION [None]
  - PRURITUS [None]
  - SWELLING FACE [None]
